FAERS Safety Report 18895616 (Version 2)
Quarter: 2025Q3

REPORT INFORMATION
  Report Type: Spontaneous
  Country: EU (occurrence: EU)
  Receive Date: 20210216
  Receipt Date: 20250726
  Transmission Date: 20251021
  Serious: Yes (Other)
  Sender: AUROBINDO
  Company Number: EU-002147023-NVSC2021FR026664

PATIENT
  Age: 83 Year
  Sex: Male

DRUGS (1)
  1. IMATINIB [Suspect]
     Active Substance: IMATINIB
     Indication: Gastrointestinal stromal tumour
     Dosage: 400 MILLIGRAM, ONCE A DAY
     Route: 065
     Dates: start: 201703

REACTIONS (2)
  - Pemphigus [Recovered/Resolved]
  - Rash pruritic [Unknown]
